FAERS Safety Report 21244718 (Version 3)
Quarter: 2025Q3

REPORT INFORMATION
  Report Type: Report from Study
  Country: US (occurrence: US)
  Receive Date: 20220823
  Receipt Date: 20250710
  Transmission Date: 20251020
  Serious: Yes (Hospitalization, Other)
  Sender: JAZZ
  Company Number: US-GW PHARMA-2022-US-027083

PATIENT
  Sex: Male

DRUGS (1)
  1. EPIDIOLEX [Suspect]
     Active Substance: CANNABIDIOL
     Indication: Partial seizures
     Dosage: 2.4 MILLILITER, BID
     Dates: start: 20181226

REACTIONS (3)
  - Blood glucose decreased [Recovered/Resolved]
  - Dehydration [Recovered/Resolved]
  - Off label use [Unknown]
